FAERS Safety Report 8501384-5 (Version None)
Quarter: 2012Q3

REPORT INFORMATION
  Report Type: 
  Country: None (occurrence: None)
  Receive Date: 20120710
  Receipt Date: 20120706
  Transmission Date: 20120928
  Serious: Yes (Other)
  Sender: FDA-Public Use
  Company Number: US-PFIZER INC-2012162743

PATIENT
  Sex: Male
  Weight: 82.993 kg

DRUGS (4)
  1. DILANTIN [Suspect]
     Dosage: 100 MG, UNK
  2. DILANTIN [Suspect]
     Dosage: 200 MG, 2X/DAY
  3. DILANTIN [Suspect]
     Indication: EPILEPSY
     Dosage: 100 MG, 3X/DAY
  4. DEPAKOTE [Suspect]
     Indication: EPILEPSY
     Dosage: 500 MG, 2X/DAY

REACTIONS (1)
  - THROMBOSIS [None]
